FAERS Safety Report 12235951 (Version 1)
Quarter: 2016Q2

REPORT INFORMATION
  Report Type: Spontaneous
  Country: US (occurrence: US)
  Receive Date: 20160404
  Receipt Date: 20160404
  Transmission Date: 20160815
  Serious: No
  Sender: FDA-Public Use
  Company Number: US-TEVA-647931USA

PATIENT
  Sex: Male

DRUGS (2)
  1. XYREM [Concomitant]
     Active Substance: SODIUM OXYBATE
  2. PROVIGIL [Suspect]
     Active Substance: MODAFINIL

REACTIONS (1)
  - Drug ineffective [Unknown]
